FAERS Safety Report 7734143-1 (Version None)
Quarter: 2011Q3

REPORT INFORMATION
  Report Type: 
  Country: None (occurrence: None)
  Receive Date: 20110901
  Receipt Date: 20110820
  Transmission Date: 20111222
  Serious: Yes (Hospitalization)
  Sender: FDA-Public Use
  Company Number: IPC201108-003156

PATIENT
  Sex: Male

DRUGS (4)
  1. FUROSEMIDE [Suspect]
     Indication: OEDEMA
  2. POTASSIUM [Suspect]
  3. ACE INHIBITOR [Suspect]
     Indication: OEDEMA
  4. SPIRONOLACTONE [Suspect]
     Indication: OEDEMA

REACTIONS (6)
  - POTENTIATING DRUG INTERACTION [None]
  - HYPERKALAEMIA [None]
  - RENAL IMPAIRMENT [None]
  - DYSPNOEA [None]
  - OEDEMA PERIPHERAL [None]
  - HYPOTENSION [None]
